FAERS Safety Report 12166752 (Version 1)
Quarter: 2016Q1

REPORT INFORMATION
  Report Type: Spontaneous
  Country: FR (occurrence: FR)
  Receive Date: 20160310
  Receipt Date: 20160310
  Transmission Date: 20160526
  Serious: Yes (Other)
  Sender: FDA-Public Use
  Company Number: FR-BRISTOL-MYERS SQUIBB COMPANY-BMS-2016-014780

PATIENT
  Age: 16 Year
  Sex: Female

DRUGS (1)
  1. KENACORT [Suspect]
     Active Substance: TRIAMCINOLONE
     Indication: RHINITIS PROPHYLAXIS
     Dosage: 1 DF, ONE TIME DOSE
     Route: 030
     Dates: start: 201506

REACTIONS (1)
  - Panniculitis [Unknown]

NARRATIVE: CASE EVENT DATE: 201510
